FAERS Safety Report 9056965 (Version 1)
Quarter: 2013Q1

REPORT INFORMATION
  Report Type: Report from Study
  Country: US (occurrence: US)
  Receive Date: 20130131
  Receipt Date: 20130131
  Transmission Date: 20140127
  Serious: No
  Sender: FDA-Public Use
  Company Number: US-ABBOTT-12P-163-0989564-00

PATIENT
  Age: 67 Year
  Sex: Female

DRUGS (5)
  1. HUMIRA [Suspect]
     Indication: RHEUMATOID ARTHRITIS
  2. MELOXICAM [Concomitant]
     Indication: PRODUCT USED FOR UNKNOWN INDICATION
     Route: 048
  3. METHOTREXATE [Concomitant]
     Indication: PRODUCT USED FOR UNKNOWN INDICATION
     Dosage: 6 PER WEEK
  4. FOLIC ACID [Concomitant]
     Indication: RHEUMATOID ARTHRITIS
  5. MILD DIURETIC [Concomitant]
     Indication: BLOOD PRESSURE INCREASED

REACTIONS (3)
  - Nasopharyngitis [Not Recovered/Not Resolved]
  - Sinus congestion [Not Recovered/Not Resolved]
  - Productive cough [Not Recovered/Not Resolved]
